FAERS Safety Report 16285982 (Version 2)
Quarter: 2019Q2

REPORT INFORMATION
  Report Type: Spontaneous
  Country: US (occurrence: US)
  Receive Date: 20190508
  Receipt Date: 20190514
  Transmission Date: 20190711
  Serious: No
  Sender: FDA-Public Use
  Company Number: US-PFIZER INC-2019191095

PATIENT
  Age: 55 Year
  Sex: Female
  Weight: 108.86 kg

DRUGS (2)
  1. RELPAX [Suspect]
     Active Substance: ELETRIPTAN HYDROBROMIDE
     Dosage: UNK, AS NEEDED(20-40MG BY MOUTH AS NEEDED TABLET TAKES UP TO TWO WITHIN 24 HOUR PERIOD AS NEEDED)
     Route: 048
     Dates: start: 2017
  2. RELPAX [Suspect]
     Active Substance: ELETRIPTAN HYDROBROMIDE
     Indication: MIGRAINE
     Dosage: UNK, AS NEEDED(20-40MG BY MOUTH AS NEEDED TABLET TAKES UP TO TWO WITHIN 24 HOUR PERIOD AS NEEDED)
     Route: 048
     Dates: start: 2010, end: 2016

REACTIONS (5)
  - Product quality issue [Unknown]
  - Migraine [Unknown]
  - Wrong dose [Unknown]
  - Somnolence [Unknown]
  - Packaging design issue [Unknown]

NARRATIVE: CASE EVENT DATE: 2016
